FAERS Safety Report 7134299-8 (Version None)
Quarter: 2010Q4

REPORT INFORMATION
  Report Type: 
  Country: None (occurrence: None)
  Receive Date: 20101203
  Receipt Date: 20101201
  Transmission Date: 20110411
  Serious: Yes (Other)
  Sender: FDA-Public Use
  Company Number: US-CEPHALON-2010006237

PATIENT
  Sex: Male
  Weight: 79 kg

DRUGS (12)
  1. ACTIQ [Suspect]
     Indication: NECK PAIN
     Route: 002
     Dates: start: 20050101
  2. DURAGESIC-100 [Concomitant]
     Indication: NECK PAIN
     Dates: start: 20050101
  3. DURAGESIC-100 [Concomitant]
     Dates: start: 20060101
  4. PRAVACHOL [Concomitant]
     Dates: start: 20080101
  5. SAVELLA [Concomitant]
     Dates: start: 20100801
  6. PROSCAR [Concomitant]
  7. FLOMAX [Concomitant]
     Dates: start: 20090101
  8. CELEBREX [Concomitant]
     Dates: start: 20060101
  9. LYRICA [Concomitant]
     Dates: start: 20060101
  10. XANAX [Concomitant]
     Dates: start: 20050101
  11. TRAMADOL HCL [Concomitant]
     Dates: start: 20050101
  12. AMBIEN CR [Concomitant]
     Dates: start: 20100601

REACTIONS (2)
  - DRY MOUTH [None]
  - DYSPNOEA [None]
